FAERS Safety Report 4388433-3 (Version None)
Quarter: 2004Q2

REPORT INFORMATION
  Report Type: 
  Country: None (occurrence: None)
  Receive Date: 20040625
  Receipt Date: 20040618
  Transmission Date: 20050107
  Serious: Yes (Hospitalization, Other)
  Sender: FDA-Public Use
  Company Number: HQWYE150201JUN04

PATIENT
  Age: 61 Year
  Sex: Female

DRUGS (10)
  1. MINOCYCLINE HCL [Suspect]
     Indication: PNEUMONIA
     Dosage: 100 MG DAILY
     Route: 041
     Dates: start: 20040528, end: 20040528
  2. KASHIWADOL (CHONDROITIN SALFATE SODIUM/SALICYLATE SODIUM) [Concomitant]
  3. ISEPACIN (ISEPANIUM SULFATE) [Concomitant]
  4. GASTROM (ECABET MONOSODIUM) [Concomitant]
  5. MUCOSTA (REBAMIPIDE) [Concomitant]
  6. CEREKINON (TRIMEBUTINE MALEATE) [Concomitant]
  7. LANSOPRAZOLE [Concomitant]
  8. MARZULENE (SODIUM GUALENATE) [Concomitant]
  9. PAXIL [Concomitant]
  10. AMOBAN (ZOPICLONE) [Concomitant]

REACTIONS (3)
  - BLOOD PRESSURE DECREASED [None]
  - DYSPNOEA [None]
  - RASH [None]
